FAERS Safety Report 20848595 (Version 3)
Quarter: 2022Q2

REPORT INFORMATION
  Report Type: Spontaneous
  Country: US (occurrence: US)
  Receive Date: 20220519
  Receipt Date: 20220622
  Transmission Date: 20220721
  Serious: No
  Sender: FDA-Public Use
  Company Number: US-ALKERMES INC.-ALK-2022-002319

PATIENT
  Sex: Female
  Weight: 87.528 kg

DRUGS (1)
  1. VIVITROL [Suspect]
     Active Substance: NALTREXONE
     Indication: Alcoholism
     Dosage: 380 MILLIGRAM, QMO
     Route: 030
     Dates: start: 20220506

REACTIONS (4)
  - Hypotension [Unknown]
  - Behavioural addiction [Recovering/Resolving]
  - Cardiovascular disorder [Not Recovered/Not Resolved]
  - Alcoholism [Recovering/Resolving]

NARRATIVE: CASE EVENT DATE: 20220101
